FAERS Safety Report 5979622-2 (Version None)
Quarter: 2008Q4

REPORT INFORMATION
  Report Type: 
  Country: None (occurrence: None)
  Receive Date: 20081204
  Receipt Date: 20081125
  Transmission Date: 20090506
  Serious: Yes (Hospitalization)
  Sender: FDA-Public Use
  Company Number: CA-WATSON-2008-07004

PATIENT
  Age: 71 Year
  Sex: Female

DRUGS (1)
  1. NITROFURANTOIN (WATSON LABORATORIES) [Suspect]
     Indication: URINARY TRACT INFECTION
     Dosage: UNK

REACTIONS (1)
  - ORGANISING PNEUMONIA [None]
